FAERS Safety Report 7638923-2 (Version None)
Quarter: 2011Q3

REPORT INFORMATION
  Report Type: 
  Country: None (occurrence: None)
  Receive Date: 20110725
  Receipt Date: 20110725
  Transmission Date: 20111222
  Serious: Yes (Death, Life-Threatening)
  Sender: FDA-Public Use
  Company Number: None

PATIENT
  Sex: Male
  Weight: 109.1 kg

DRUGS (2)
  1. PEGASYS [Suspect]
     Indication: HEPATITIS C
     Dosage: 180 MCG ONCE WEEKLY SQ 047
     Route: 048
     Dates: start: 20110228, end: 20110624
  2. RIBAVIRIN [Suspect]
     Dosage: 200MG 3 AM 3 PM PO 047
     Route: 048
     Dates: start: 20110228, end: 20110624

REACTIONS (1)
  - UNEVALUABLE EVENT [None]
